FAERS Safety Report 7691603-X (Version None)
Quarter: 2011Q3

REPORT INFORMATION
  Report Type: 
  Country: None (occurrence: None)
  Receive Date: 20110818
  Receipt Date: 20110804
  Transmission Date: 20111222
  Serious: Yes (Other)
  Sender: FDA-Public Use
  Company Number: GB-WATSON-2010-12603

PATIENT
  Age: 49 Year
  Sex: Female

DRUGS (7)
  1. LAMOTRIGINE [Suspect]
     Indication: CONVULSION
     Dosage: 50 MG, UNKNOWN
     Route: 065
     Dates: end: 20100801
  2. PAROXETINE HCL [Concomitant]
     Indication: DEPRESSION
     Dosage: 30 MG, UNKNOWN
     Route: 048
  3. RAMIPRIL [Concomitant]
     Indication: HYPERTENSION
     Dosage: 10 MG, UNKNOWN
     Route: 048
  4. TEMAZEPAM [Concomitant]
     Indication: INSOMNIA
     Dosage: 10 MG, UNKNOWN
     Route: 048
  5. CLOZAPINE [Suspect]
     Indication: SCHIZOPHRENIA
     Dosage: 600 MG, DAILY
     Route: 048
     Dates: start: 20050207
  6. AMISULPRIDE (UNKNOWN) [Suspect]
     Route: 048
  7. AMISULPRIDE (UNKNOWN) [Suspect]
     Indication: SCHIZOPHRENIA
     Dosage: 200 MG, UNKNOWN
     Route: 048
     Dates: end: 20100801

REACTIONS (8)
  - NEUTROPHIL COUNT INCREASED [None]
  - MENTAL IMPAIRMENT [None]
  - BREAST CANCER [None]
  - METASTASES TO SPINE [None]
  - ABSCESS [None]
  - WHITE BLOOD CELL COUNT INCREASED [None]
  - BREAST ABSCESS [None]
  - PLATELET COUNT DECREASED [None]
